FAERS Safety Report 9799144 (Version 1)
Quarter: 2014Q1

REPORT INFORMATION
  Report Type: Spontaneous
  Country: US (occurrence: US)
  Receive Date: 20140106
  Receipt Date: 20140106
  Transmission Date: 20141002
  Serious: No
  Sender: FDA-Public Use
  Company Number: US-GILEAD-2010-0033858

PATIENT
  Age: 83 Year
  Sex: 0

DRUGS (1)
  1. LETAIRIS [Suspect]
     Indication: PULMONARY ARTERIAL HYPERTENSION
     Route: 048
     Dates: start: 20101102

REACTIONS (3)
  - Asthenia [Unknown]
  - Tremor [Unknown]
  - Dyspnoea [Unknown]
